FAERS Safety Report 8935426 (Version 2)
Quarter: 2013Q2

REPORT INFORMATION
  Report Type: Spontaneous
  Country: US (occurrence: US)
  Receive Date: 20121119
  Receipt Date: 20130524
  Transmission Date: 20140414
  Serious: Yes (Other)
  Sender: FDA-Public Use
  Company Number: US-BANPHARM-20120338

PATIENT
  Age: 13 Year
  Sex: Male
  Weight: 43.1 kg

DRUGS (1)
  1. IBUPROFEN [Suspect]
     Indication: MEDICAL DEVICE PAIN
     Dosage: 1 DF, ONCE,
     Route: 048
     Dates: start: 20121019, end: 20121019

REACTIONS (1)
  - Anaphylactic reaction [Recovered/Resolved]
